FAERS Safety Report 17470244 (Version 2)
Quarter: 2020Q1

REPORT INFORMATION
  Report Type: Report from Study
  Country: None (occurrence: US)
  Receive Date: 20200227
  Receipt Date: 20200315
  Transmission Date: 20200409
  Serious: Yes (Other)
  Sender: FDA-Public Use
  Company Number: US-ABBVIE-19K-163-3200147-00

PATIENT
  Sex: Female

DRUGS (3)
  1. HUMIRA [Suspect]
     Active Substance: ADALIMUMAB
     Route: 058
  2. HUMIRA [Suspect]
     Active Substance: ADALIMUMAB
     Route: 058
  3. HUMIRA [Suspect]
     Active Substance: ADALIMUMAB
     Indication: PSORIATIC ARTHROPATHY
     Route: 058

REACTIONS (11)
  - Skin exfoliation [Recovering/Resolving]
  - Dental caries [Unknown]
  - Tongue discolouration [Unknown]
  - Osteoarthritis [Unknown]
  - Tongue ulceration [Recovering/Resolving]
  - Tongue ulceration [Recovered/Resolved]
  - Impaired healing [Unknown]
  - Asthma [Recovering/Resolving]
  - Psoriasis [Recovering/Resolving]
  - Joint injection [Recovered/Resolved]
  - Ear pain [Recovering/Resolving]

NARRATIVE: CASE EVENT DATE: 2019
